FAERS Safety Report 8583691 (Version 5)
Quarter: 2014Q2

REPORT INFORMATION
  Report Type: Spontaneous
  Country: US (occurrence: US)
  Receive Date: 20120529
  Receipt Date: 20140602
  Transmission Date: 20141212
  Serious: Yes (Other)
  Sender: FDA-Public Use
  Company Number: US-GLAXOSMITHKLINE-A0978603A

PATIENT
  Age: 58 Year
  Sex: Male

DRUGS (8)
  1. REQUIP XL [Suspect]
     Indication: PARKINSON^S DISEASE
     Dosage: 8MG PER DAY
     Route: 048
     Dates: start: 201101
  2. ROPINIROLE HYDROCHLORIDE [Suspect]
     Indication: PARKINSON^S DISEASE
     Route: 065
  3. CARBIDOPA + LEVODOPA [Concomitant]
  4. AVONEX [Concomitant]
  5. ENALAPRIL [Concomitant]
  6. THYROXINE [Concomitant]
  7. CITALOPRAM [Concomitant]
  8. LEVOTHYROXINE [Concomitant]

REACTIONS (3)
  - Hallucination [Unknown]
  - Compulsive sexual behaviour [Not Recovered/Not Resolved]
  - Eating disorder [Not Recovered/Not Resolved]
